FAERS Safety Report 5136713-6 (Version None)
Quarter: 2006Q4

REPORT INFORMATION
  Report Type: 
  Country: None (occurrence: None)
  Receive Date: 20061023
  Receipt Date: 20061016
  Transmission Date: 20070319
  Serious: Yes (Life-Threatening)
  Sender: FDA-Public Use
  Company Number: GXKR2006DE06505

PATIENT
  Age: 70 Year
  Sex: Female
  Weight: 65 kg

DRUGS (3)
  1. CARBOPLATIN HEXAL [Suspect]
     Indication: OVARIAN CANCER
     Dosage: ONCE/SINGLE, INTRAVENOUS
     Route: 042
     Dates: start: 20060817, end: 20060817
  2. CARBOPLATIN HEXAL [Suspect]
     Indication: OVARIAN CANCER
     Dosage: ONCE/SINGLE, INTRAVENOUS
     Route: 042
     Dates: start: 20060907, end: 20060907
  3. CARBOPLATIN HEXAL [Suspect]
     Indication: OVARIAN CANCER
     Dosage: ONCE/SINGLE, INTRAVENOUS
     Route: 042
     Dates: start: 20060928, end: 20060928

REACTIONS (1)
  - ANAPHYLACTIC SHOCK [None]
